FAERS Safety Report 9711835 (Version 1)
Quarter: 2013Q4

REPORT INFORMATION
  Report Type: Spontaneous
  Country: US (occurrence: US)
  Receive Date: 20131126
  Receipt Date: 20131126
  Transmission Date: 20140711
  Serious: No
  Sender: FDA-Public Use
  Company Number: US-BRISTOL-MYERS SQUIBB COMPANY-19115245

PATIENT
  Age: 61 Year
  Sex: Female
  Weight: 88.43 kg

DRUGS (7)
  1. BYDUREON 2MG SUSPENSION [Suspect]
     Indication: TYPE 2 DIABETES MELLITUS
     Dosage: NO OF INJECTIONS:5
     Route: 058
     Dates: start: 20130315, end: 20130412
  2. METFORMIN [Concomitant]
     Route: 048
  3. FENOFIBRATE [Concomitant]
  4. LISINOPRIL [Concomitant]
  5. TOPROL [Concomitant]
  6. ESTRACE [Concomitant]
  7. PROGESTERONE [Concomitant]

REACTIONS (5)
  - Injection site nodule [Not Recovered/Not Resolved]
  - Injection site erythema [Recovered/Resolved]
  - Injection site irritation [Unknown]
  - Injection site pruritus [Unknown]
  - Injection site pain [Recovering/Resolving]
